FAERS Safety Report 22271384 (Version 4)
Quarter: 2023Q2

REPORT INFORMATION
  Report Type: Report from Study
  Country: GB (occurrence: GB)
  Receive Date: 20230501
  Receipt Date: 20230615
  Transmission Date: 20230721
  Serious: Yes (Death, Other)
  Sender: FDA-Public Use
  Company Number: GB-CELLTRION INC.-2023GB008942

PATIENT

DRUGS (41)
  1. TRASTUZUMAB [Suspect]
     Active Substance: TRASTUZUMAB
     Indication: Breast cancer
     Dosage: 1 DF, EVERY 3 WEEKS; NUMBER OF CYCLES PER REGIMEN 1
     Route: 042
     Dates: start: 20151008, end: 20151008
  2. TRASTUZUMAB [Suspect]
     Active Substance: TRASTUZUMAB
     Dosage: 1 DF, EVERY 3 WEEKS; NUMBER OF CYCLES PER REGIMEN 1
     Route: 042
     Dates: start: 20151008, end: 20151008
  3. TRASTUZUMAB [Suspect]
     Active Substance: TRASTUZUMAB
     Dosage: 1 DF, EVERY 3 WEEKS; NUMBER OF CYCLES PER REGIMEN 1
     Route: 042
     Dates: start: 20151008, end: 20151008
  4. TRASTUZUMAB [Suspect]
     Active Substance: TRASTUZUMAB
     Dosage: 1 DF, EVERY 3 WEEKS; NUMBER OF CYCLES PER REGIMEN 1
     Route: 042
     Dates: start: 20151008, end: 20151008
  5. TRASTUZUMAB [Suspect]
     Active Substance: TRASTUZUMAB
     Dosage: 1 DF, EVERY 3 WEEKS
     Route: 042
     Dates: start: 20170922
  6. TRASTUZUMAB [Suspect]
     Active Substance: TRASTUZUMAB
     Dosage: 1 DF, EVERY 3 WEEKS
     Route: 042
     Dates: start: 20170922
  7. TRASTUZUMAB [Suspect]
     Active Substance: TRASTUZUMAB
     Dosage: 1 DF, EVERY 3 WEEKS
     Route: 042
     Dates: start: 20170922
  8. TRASTUZUMAB [Suspect]
     Active Substance: TRASTUZUMAB
     Dosage: 1 DF, EVERY 3 WEEKS
     Route: 042
     Dates: start: 20170922
  9. TRASTUZUMAB [Suspect]
     Active Substance: TRASTUZUMAB
     Dosage: 1 DF, EVERY 3 WEEKS
     Route: 042
     Dates: start: 20151029, end: 20170413
  10. TRASTUZUMAB [Suspect]
     Active Substance: TRASTUZUMAB
     Dosage: 1 DF, EVERY 3 WEEKS
     Route: 042
     Dates: start: 20151029, end: 20170413
  11. TRASTUZUMAB [Suspect]
     Active Substance: TRASTUZUMAB
     Dosage: 1 DF, EVERY 3 WEEKS
     Route: 042
     Dates: start: 20151029, end: 20170413
  12. TRASTUZUMAB [Suspect]
     Active Substance: TRASTUZUMAB
     Dosage: 1 DF, EVERY 3 WEEKS
     Route: 042
     Dates: start: 20151029, end: 20170413
  13. TRASTUZUMAB [Suspect]
     Active Substance: TRASTUZUMAB
     Dosage: 1 DF, EVERY 3 WEEKS
     Route: 042
     Dates: start: 20171012, end: 20180801
  14. TRASTUZUMAB [Suspect]
     Active Substance: TRASTUZUMAB
     Dosage: 1 DF, EVERY 3 WEEKS
     Route: 042
     Dates: start: 20171012, end: 20180801
  15. TRASTUZUMAB [Suspect]
     Active Substance: TRASTUZUMAB
     Dosage: 1 DF, EVERY 3 WEEKS
     Route: 042
     Dates: start: 20171012, end: 20180801
  16. TRASTUZUMAB [Suspect]
     Active Substance: TRASTUZUMAB
     Dosage: 1 DF, EVERY 3 WEEKS
     Route: 042
     Dates: start: 20171012, end: 20180801
  17. DOCETAXEL [Suspect]
     Active Substance: DOCETAXEL
     Indication: Breast cancer
     Dosage: 1 DF, EVERY 3 WEEKS
     Route: 042
     Dates: start: 20160111, end: 20160209
  18. DOCETAXEL [Suspect]
     Active Substance: DOCETAXEL
     Dosage: DOSE: 1, EVERY 3 WEEKS
     Route: 042
     Dates: start: 20160111, end: 20160209
  19. DOCETAXEL [Suspect]
     Active Substance: DOCETAXEL
     Dosage: DOSE: 1, EVERY 3 WEEKS; NUMBER OF CYCLES PER REGIMEN 6
     Route: 042
     Dates: start: 20151009, end: 20151210
  20. DOCETAXEL [Suspect]
     Active Substance: DOCETAXEL
     Dosage: DOSE: 1, EVERY 3 WEEKS; NUMBER OF CYCLES PER REGIMEN 6
     Route: 042
     Dates: start: 20151009, end: 20151210
  21. PERTUZUMAB [Suspect]
     Active Substance: PERTUZUMAB
     Indication: Breast cancer
     Dosage: 1 DF, EVERY 3 WEEKS
     Route: 042
     Dates: start: 20151029, end: 20170413
  22. PERTUZUMAB [Suspect]
     Active Substance: PERTUZUMAB
     Dosage: 1 DF, EVERY 3 WEEKS
     Route: 042
     Dates: start: 20151029, end: 20170413
  23. PERTUZUMAB [Suspect]
     Active Substance: PERTUZUMAB
     Dosage: DOSE: 1, EVERY 3 WEEKS
     Route: 042
     Dates: start: 20151029, end: 20170413
  24. PERTUZUMAB [Suspect]
     Active Substance: PERTUZUMAB
     Dosage: 1 DF, EVERY 1 DAY; NUMBER OF CYCLES PER REGIMEN 1
     Route: 042
     Dates: start: 20151008, end: 20151008
  25. PERTUZUMAB [Suspect]
     Active Substance: PERTUZUMAB
     Dosage: 1 DF, EVERY 1 DAY; NUMBER OF CYCLES PER REGIMEN 1
     Route: 042
     Dates: start: 20151008, end: 20151008
  26. PERTUZUMAB [Suspect]
     Active Substance: PERTUZUMAB
     Dosage: DOSE: 1, EVERY 1 DAY; NUMBER OF CYCLES PER REGIMEN 1
     Route: 042
     Dates: start: 20151008, end: 20151008
  27. PERTUZUMAB [Suspect]
     Active Substance: PERTUZUMAB
     Dosage: DOSE: 1, EVERY 3 WEEKS
     Route: 042
     Dates: start: 20170921, end: 20180329
  28. PERTUZUMAB [Suspect]
     Active Substance: PERTUZUMAB
     Dosage: DOSE: 1, EVERY 3 WEEKS
     Route: 042
     Dates: start: 20170921, end: 20180329
  29. PERTUZUMAB [Suspect]
     Active Substance: PERTUZUMAB
     Dosage: DOSE: 1, EVERY 3 WEEKS
     Route: 042
     Dates: start: 20170921, end: 20180329
  30. BUTYLSCOPOLAMINE BROMIDE [Concomitant]
     Active Substance: BUTYLSCOPOLAMINE BROMIDE
     Dosage: 10 MG
     Route: 048
  31. DEXAMETHASONE [Concomitant]
     Active Substance: DEXAMETHASONE
     Indication: Headache
  32. DOXAZOSIN [Concomitant]
     Active Substance: DOXAZOSIN MESYLATE
     Dosage: 4 MG, QD
     Route: 048
  33. ESOMEPRAZOLE [Concomitant]
     Active Substance: ESOMEPRAZOLE
     Dosage: 20 ML, QD
     Route: 048
     Dates: end: 20200101
  34. FUROSEMIDE [Concomitant]
     Active Substance: FUROSEMIDE
     Dosage: 20 MG, QD
     Route: 048
     Dates: end: 20200101
  35. HYDROCHLOROTHIAZIDE [Concomitant]
     Active Substance: HYDROCHLOROTHIAZIDE
     Dosage: 1 EVERY 1 DAY
     Route: 048
  36. METOPROLOL [Concomitant]
     Active Substance: METOPROLOL
     Dosage: 25 MG, QD
     Route: 048
     Dates: end: 20170522
  37. ONDANSETRON [Concomitant]
     Active Substance: ONDANSETRON
     Indication: Nausea
     Dosage: 2 MG
     Route: 048
  38. PERINDOPRIL [Concomitant]
     Active Substance: PERINDOPRIL
     Dosage: 4 MG, QD
     Route: 048
     Dates: start: 20161123
  39. PROCHLORPERAZINE DIMETHANESULFONATE [Concomitant]
     Active Substance: PROCHLORPERAZINE DIMETHANESULFONATE
     Indication: Nausea
  40. SYMBICORT [Concomitant]
     Active Substance: BUDESONIDE\FORMOTEROL FUMARATE DIHYDRATE
     Dosage: 100.00 PUFF/ 2 EVERY 1 DAY
     Route: 065
  41. TELMISARTAN [Concomitant]
     Active Substance: TELMISARTAN
     Dosage: 1 DF, 1 EVERY 1 DAY
     Route: 048

REACTIONS (3)
  - Metastatic neoplasm [Fatal]
  - Breast cancer [Fatal]
  - Disease progression [Fatal]

NARRATIVE: CASE EVENT DATE: 20200101
